FAERS Safety Report 7956413-4 (Version None)
Quarter: 2011Q4

REPORT INFORMATION
  Report Type: 
  Country: None (occurrence: None)
  Receive Date: 20111205
  Receipt Date: 20111122
  Transmission Date: 20120403
  Serious: Yes (Hospitalization)
  Sender: FDA-Public Use
  Company Number: FR-JNJFOC-20111111210

PATIENT
  Sex: Male
  Weight: 45.3 kg

DRUGS (1)
  1. INFLIXIMAB, RECOMBINANT [Suspect]
     Indication: CROHN'S DISEASE
     Route: 042
     Dates: start: 20080612

REACTIONS (4)
  - VOMITING [None]
  - PALPITATIONS [None]
  - PANIC ATTACK [None]
  - ENURESIS [None]
